FAERS Safety Report 4496801-4 (Version None)
Quarter: 2004Q4

REPORT INFORMATION
  Report Type: 
  Country: None (occurrence: None)
  Receive Date: 20041109
  Receipt Date: 20041102
  Transmission Date: 20050328
  Serious: Yes (Other)
  Sender: FDA-Public Use
  Company Number: FI-JNJFOC-20041100445

PATIENT
  Sex: Female
  Weight: 57 kg

DRUGS (1)
  1. ORTHO EVRA [Suspect]
     Indication: CONTRACEPTION
     Route: 062
     Dates: start: 20040716

REACTIONS (7)
  - ABORTION INDUCED [None]
  - AMENORRHOEA [None]
  - CERVIX DISORDER [None]
  - CERVIX HAEMORRHAGE UTERINE [None]
  - DRUG EXPOSURE DURING PREGNANCY [None]
  - SCAR [None]
  - UNINTENDED PREGNANCY [None]
